FAERS Safety Report 10071381 (Version 1)
Quarter: 2014Q2

REPORT INFORMATION
  Report Type: Spontaneous
  Country: GB (occurrence: GB)
  Receive Date: 20140410
  Receipt Date: 20140410
  Transmission Date: 20141212
  Serious: Yes (Other)
  Sender: FDA-Public Use
  Company Number: GB-ALLERGAN-1406700US

PATIENT
  Age: 50 Year
  Sex: Female
  Weight: 67.9 kg

DRUGS (2)
  1. ALPHAGAN 0.2% W/V (2 MG/ML) EYE DROPS SOLUTION [Suspect]
     Indication: GLAUCOMA
  2. RAMIPRIL [Concomitant]
     Indication: HYPERTENSION
     Dosage: 5 MG, UNK

REACTIONS (4)
  - Incorrect product storage [Unknown]
  - Ocular hyperaemia [Recovered/Resolved]
  - Blepharitis [Recovered/Resolved]
  - Eye pruritus [Recovered/Resolved]
